FAERS Safety Report 18775487 (Version 1)
Quarter: 2021Q1

REPORT INFORMATION
  Report Type: Spontaneous
  Country: US (occurrence: US)
  Receive Date: 20210122
  Receipt Date: 20210122
  Transmission Date: 20210419
  Serious: No
  Sender: FDA-Public Use
  Company Number: US-ACCORD-207413

PATIENT
  Age: 60 Year
  Sex: Male

DRUGS (1)
  1. CLOZAPINE ACCORD [Suspect]
     Active Substance: CLOZAPINE
     Indication: PRODUCT USED FOR UNKNOWN INDICATION
     Route: 048

REACTIONS (9)
  - Fall [Unknown]
  - Blood lactic acid increased [Unknown]
  - White blood cell count decreased [Unknown]
  - Neutrophilia [Unknown]
  - Pyrexia [Unknown]
  - Tachypnoea [Unknown]
  - Mental status changes [Unknown]
  - Blood culture positive [Unknown]
  - Tachycardia [Unknown]

NARRATIVE: CASE EVENT DATE: 20201029
